FAERS Safety Report 5603355-5 (Version None)
Quarter: 2008Q1

REPORT INFORMATION
  Report Type: 
  Country: None (occurrence: None)
  Receive Date: 20080122
  Receipt Date: 20080107
  Transmission Date: 20080703
  Serious: Yes (Other)
  Sender: FDA-Public Use
  Company Number: GB-1164948

PATIENT
  Age: 62 Year
  Sex: Male

DRUGS (12)
  1. BSS [Suspect]
  2. EPINEPHRINE [Concomitant]
  3. BETAMETHASONE [Concomitant]
  4. CYCLOPENTOLATE HYDROCHLORIDE [Concomitant]
  5. HYALURONATE SODIUM(HYLURONATE SODIUM) [Concomitant]
  6. LIDOCAINE [Concomitant]
  7. NEOMYCIN [Concomitant]
  8. OCUFEN [Concomitant]
  9. PHENYLEPHRINE (PHENYLEPHRINE HYDROCHLORIDE) [Concomitant]
  10. POVIDONE IODINE [Concomitant]
  11. VANCOMYCIN [Concomitant]
  12. PROXYMETACAINE(PROXYMETACAINE) [Concomitant]

REACTIONS (2)
  - POST PROCEDURAL COMPLICATION [None]
  - TOXIC ANTERIOR SEGMENT SYNDROME [None]
